FAERS Safety Report 17377744 (Version 1)
Quarter: 2020Q1

REPORT INFORMATION
  Report Type: Spontaneous
  Country: US (occurrence: US)
  Receive Date: 20200122
  Receipt Date: 20200122
  Transmission Date: 20200409
  Serious: Yes (Other)
  Sender: FDA-Public Use
  Company Number: None

PATIENT
  Age: 50 Year
  Sex: Male
  Weight: 98.88 kg

DRUGS (1)
  1. DAPTOMYCIN 500MG [Suspect]
     Active Substance: DAPTOMYCIN
     Indication: CELLULITIS
     Dosage: ?          OTHER FREQUENCY:Q24HRS;?
     Route: 042
     Dates: start: 20200109, end: 20200109

REACTIONS (3)
  - Tremor [None]
  - Blood pressure fluctuation [None]
  - Chills [None]

NARRATIVE: CASE EVENT DATE: 20200109
